FAERS Safety Report 4399081-3 (Version None)
Quarter: 2004Q2

REPORT INFORMATION
  Report Type: 
  Country: None (occurrence: None)
  Receive Date: 20040621
  Receipt Date: 20031121
  Transmission Date: 20050107
  Serious: Yes (Death, Other)
  Sender: FDA-Public Use
  Company Number: 2012355

PATIENT
  Age: 19 Year
  Sex: Male
  Weight: 72 kg

DRUGS (7)
  1. OXYCODONE HCL [Suspect]
  2. DIPHENHYDRAMINE HCL [Suspect]
  3. COCAINE (COCAINE) [Suspect]
  4. PHENOTHIAZINE (PHENOTIAZINE) [Suspect]
  5. NICOTINE [Suspect]
  6. ACETAMINOPHEN [Suspect]
  7. PROMETHAZINE [Suspect]

REACTIONS (2)
  - ACCIDENTAL OVERDOSE [None]
  - DRUG ABUSER [None]
